FAERS Safety Report 25414879 (Version 3)
Quarter: 2025Q4

REPORT INFORMATION
  Report Type: Report from Study
  Country: US (occurrence: None)
  Receive Date: 20250609
  Receipt Date: 20251209
  Transmission Date: 20260118
  Serious: Yes (Other)
  Sender: UCB
  Company Number: US-UCBSA-2025033850

PATIENT
  Age: 5 Year
  Weight: 23 kg

DRUGS (4)
  1. FENFLURAMINE [Suspect]
     Active Substance: FENFLURAMINE
     Indication: CDKL5 deficiency disorder
     Dosage: 3 MILLILITER, 2X/DAY (BID) VIA PGT
  2. FENFLURAMINE [Suspect]
     Active Substance: FENFLURAMINE
     Indication: Off label use
  3. CLOBAZAM [Concomitant]
     Active Substance: CLOBAZAM
     Indication: Epilepsy
     Dosage: 10 MILLIGRAM AND 15 MILLIGRAM VIA PGT
  4. EPIDIOLEX [Concomitant]
     Active Substance: CANNABIDIOL
     Indication: Epilepsy
     Dosage: 220 MILLIGRAM, 2X/DAY (BID) VIA PGT

REACTIONS (2)
  - Mitral valve incompetence [Recovering/Resolving]
  - Off label use [Unknown]
